FAERS Safety Report 5071224-8 (Version None)
Quarter: 2006Q3

REPORT INFORMATION
  Report Type: 
  Country: None (occurrence: None)
  Receive Date: 20060804
  Receipt Date: 20060725
  Transmission Date: 20061208
  Serious: Yes (Hospitalization)
  Sender: FDA-Public Use
  Company Number: US-JNJFOC-20060501813

PATIENT
  Sex: Male

DRUGS (17)
  1. REMICADE [Suspect]
  2. REMICADE [Suspect]
  3. REMICADE [Suspect]
  4. REMICADE [Suspect]
  5. REMICADE [Suspect]
  6. REMICADE [Suspect]
  7. REMICADE [Suspect]
  8. REMICADE [Suspect]
  9. REMICADE [Suspect]
     Indication: COLITIS ULCERATIVE
  10. TEGRETOL [Concomitant]
     Indication: EPILEPSY
     Route: 048
  11. ALLEGRA [Concomitant]
     Indication: SINUSITIS
     Route: 048
  12. NASONEX [Concomitant]
     Indication: SINUSITIS
     Route: 045
  13. ROBINUL [Concomitant]
     Indication: COLITIS ULCERATIVE
     Route: 048
  14. IMODIUM [Concomitant]
     Indication: COLITIS ULCERATIVE
     Route: 048
  15. PREDNISONE TAB [Concomitant]
     Indication: COLITIS ULCERATIVE
     Route: 048
  16. ASACOL [Concomitant]
     Indication: COLITIS ULCERATIVE
     Route: 048
  17. PROZAC [Concomitant]
     Indication: DEPRESSION
     Route: 048

REACTIONS (4)
  - DYSPNOEA [None]
  - ERYTHEMA MULTIFORME [None]
  - LYMPHADENOPATHY [None]
  - SARCOIDOSIS [None]
